FAERS Safety Report 5441905-2 (Version None)
Quarter: 2007Q3

REPORT INFORMATION
  Report Type: 
  Country: None (occurrence: None)
  Receive Date: 20070830
  Receipt Date: 20070830
  Transmission Date: 20080115
  Serious: No
  Sender: FDA-Public Use
  Company Number: None

PATIENT
  Sex: Male
  Weight: 89.27 kg

DRUGS (3)
  1. TAXOTERE [Suspect]
     Dosage: 160.5 MG
  2. LEUPROLIDE ACETATE [Suspect]
     Dosage: 60 MG
  3. PREDNISONE [Suspect]
     Dosage: 75 MG

REACTIONS (1)
  - NEUTROPENIA [None]
